FAERS Safety Report 8762471 (Version 2)
Quarter: 2012Q4

REPORT INFORMATION
  Report Type: 
  Country: US (occurrence: US)
  Receive Date: 20120830
  Receipt Date: 20120906
  Transmission Date: 20130627
  Serious: Yes (Other)
  Sender: FDA-Public Use
  Company Number: US-ABBOTT-12P-163-0973067-00

PATIENT
  Age: 45 Year
  Sex: Female

DRUGS (3)
  1. VALPROATE SODIUM [Suspect]
     Indication: BIPOLAR DISORDER
     Route: 065
  2. LITHIUM CARBONATE [Suspect]
     Indication: BIPOLAR DISORDER
     Route: 065
  3. QUETIAPINE FUMARATE [Suspect]
     Indication: BIPOLAR DISORDER
     Route: 065

REACTIONS (6)
  - Breast discharge [Unknown]
  - Drug ineffective [Unknown]
  - Galactorrhoea [Recovered/Resolved]
  - Breast enlargement [Unknown]
  - Breast pain [Unknown]
  - Amenorrhoea [Unknown]
